FAERS Safety Report 8394967-7 (Version None)
Quarter: 2012Q2

REPORT INFORMATION
  Report Type: 
  Country: None (occurrence: None)
  Receive Date: 20120530
  Receipt Date: 20120203
  Transmission Date: 20120825
  Serious: No
  Sender: FDA-Public Use
  Company Number: US-GLAXOSMITHKLINE-A0964666A

PATIENT
  Age: 63 Year
  Sex: Female

DRUGS (2)
  1. FLOLAN [Suspect]
     Indication: PULMONARY ARTERIAL HYPERTENSION
     Dosage: 12NGKM SEE DOSAGE TEXT
     Route: 042
     Dates: start: 20120109
  2. COUMADIN [Concomitant]
     Route: 048

REACTIONS (2)
  - ABDOMINAL DISTENSION [None]
  - JOINT SWELLING [None]
